FAERS Safety Report 5060983-6 (Version None)
Quarter: 2006Q3

REPORT INFORMATION
  Report Type: 
  Country: None (occurrence: None)
  Receive Date: 20060720
  Receipt Date: 20060714
  Transmission Date: 20061208
  Serious: No
  Sender: FDA-Public Use
  Company Number: 2006-148

PATIENT
  Age: 41 Year

DRUGS (10)
  1. CIPROFLOXACIN [Suspect]
     Indication: ANTIBIOTIC PROPHYLAXIS
     Dosage: 1 TABLET TWICE A DAY
     Dates: start: 20060526, end: 20060529
  2. CIPROFLOXACIN [Suspect]
     Indication: PERITONITIS BACTERIAL
     Dosage: 1 TABLET TWICE A DAY
     Dates: start: 20060526, end: 20060529
  3. FOLIC ACID [Concomitant]
  4. LACTULOSE [Concomitant]
  5. LANSOPRAZOLE [Concomitant]
  6. SUCRALFATE [Concomitant]
  7. SPIRONOLACTONE [Concomitant]
  8. TERLIPRESSIN [Concomitant]
  9. THIAMINE [Concomitant]
  10. VITAMIN B COMPLEX CAP [Concomitant]

REACTIONS (1)
  - GRAND MAL CONVULSION [None]
